FAERS Safety Report 24829482 (Version 3)
Quarter: 2025Q1

REPORT INFORMATION
  Report Type: Spontaneous
  Country: FR (occurrence: FR)
  Receive Date: 20250110
  Receipt Date: 20250302
  Transmission Date: 20250409
  Serious: Yes (Other)
  Sender: ROCHE
  Company Number: FR-002147023-NVSC2025FR001445

PATIENT
  Age: 93 Year
  Sex: Female

DRUGS (1)
  1. LUCENTIS [Suspect]
     Active Substance: RANIBIZUMAB
     Indication: Neovascular age-related macular degeneration
     Route: 050

REACTIONS (2)
  - Blindness [Unknown]
  - Eye haematoma [Unknown]

NARRATIVE: CASE EVENT DATE: 20241227
